FAERS Safety Report 9181069 (Version 1)
Quarter: 2013Q1

REPORT INFORMATION
  Report Type: Spontaneous
  Country: US (occurrence: US)
  Receive Date: 20130322
  Receipt Date: 20130322
  Transmission Date: 20140127
  Serious: Yes (Hospitalization)
  Sender: FDA-Public Use
  Company Number: US-BAYER-2013-034483

PATIENT
  Age: 57 Year
  Sex: Female

DRUGS (8)
  1. YAZ [Suspect]
  2. LEXAPRO [Concomitant]
  3. ALPRAZOLAM [Concomitant]
  4. ZETIA [Concomitant]
  5. LACRI-LUBE S.O.P. [Concomitant]
     Dosage: EYE OINTMENT
  6. MULTIVITAMIN [Concomitant]
  7. XANAX [Concomitant]
  8. PREVACID [Concomitant]

REACTIONS (1)
  - Pulmonary embolism [None]
